FAERS Safety Report 23035799 (Version 1)
Quarter: 2023Q4

REPORT INFORMATION
  Report Type: Report from Study
  Country: IT (occurrence: IT)
  Receive Date: 20231006
  Receipt Date: 20231006
  Transmission Date: 20240110
  Serious: Yes (Other)
  Sender: FDA-Public Use
  Company Number: IT-SANDOZ-SDZ2023IT032205

PATIENT
  Sex: Female

DRUGS (1)
  1. VALACYCLOVIR [Suspect]
     Active Substance: VALACYCLOVIR HYDROCHLORIDE
     Indication: Congenital cytomegalovirus infection
     Dosage: 8 GRAM, DAILY
     Route: 048

REACTIONS (3)
  - Nephropathy toxic [Unknown]
  - Maternal exposure during pregnancy [Unknown]
  - Off label use [Unknown]
